FAERS Safety Report 4745864-7 (Version None)
Quarter: 2005Q3

REPORT INFORMATION
  Report Type: 
  Country: None (occurrence: None)
  Receive Date: 20050816
  Receipt Date: 20050811
  Transmission Date: 20060218
  Serious: Yes (Death)
  Sender: FDA-Public Use
  Company Number: US-BRISTOL-MYERS SQUIBB COMPANY-13073200

PATIENT
  Sex: Male

DRUGS (4)
  1. AVAPRO [Suspect]
  2. GLUCOPHAGE [Suspect]
  3. GLUCOVANCE [Suspect]
  4. PLAVIX [Suspect]

REACTIONS (1)
  - DEATH [None]
